FAERS Safety Report 5319539-X (Version None)
Quarter: 2007Q2

REPORT INFORMATION
  Report Type: 
  Country: None (occurrence: None)
  Receive Date: 20070508
  Receipt Date: 20070501
  Transmission Date: 20071010
  Serious: Yes (Disabling)
  Sender: FDA-Public Use
  Company Number: GB-ABBOTT-07P-167-0367009-00

PATIENT
  Age: 57 Year
  Sex: Female
  Weight: 70 kg

DRUGS (7)
  1. HUMIRA [Suspect]
     Indication: DRUG USE FOR UNKNOWN INDICATION
     Dates: start: 20040218, end: 20070411
  2. METHOTREXATE [Concomitant]
     Indication: DRUG USE FOR UNKNOWN INDICATION
     Dates: start: 19900101
  3. OMEPRAZOLE [Concomitant]
     Indication: DRUG USE FOR UNKNOWN INDICATION
     Dates: start: 20050101
  4. DOSULEPIN [Concomitant]
     Indication: DRUG USE FOR UNKNOWN INDICATION
  5. ESTROGENS CONJUGATED [Concomitant]
     Indication: HORMONE REPLACEMENT THERAPY
  6. TRAMADOL HCL [Concomitant]
     Indication: PAIN
     Dosage: 50-100 MILLIGRAM
  7. ACETAMINOPHEN AND CODEINE PHOSPHATE [Concomitant]
     Indication: PAIN

REACTIONS (4)
  - DRUG DOSE OMISSION [None]
  - FACIAL PARESIS [None]
  - HYPOAESTHESIA FACIAL [None]
  - PARAESTHESIA [None]
